FAERS Safety Report 6616739-3 (Version None)
Quarter: 2010Q1

REPORT INFORMATION
  Report Type: 
  Country: None (occurrence: None)
  Receive Date: 20100305
  Receipt Date: 20100223
  Transmission Date: 20100710
  Serious: Yes (Other)
  Sender: FDA-Public Use
  Company Number: TR-ABBOTT-10P-161-0628214-00

PATIENT
  Sex: Female
  Weight: 67 kg

DRUGS (1)
  1. REDUCTIL 15MG [Suspect]
     Indication: OBESITY
     Route: 048
     Dates: start: 20100218, end: 20100221

REACTIONS (3)
  - C-REACTIVE PROTEIN INCREASED [None]
  - HEPATIC ENZYME INCREASED [None]
  - JAUNDICE [None]
